FAERS Safety Report 8071931-9 (Version None)
Quarter: 2012Q1

REPORT INFORMATION
  Report Type: 
  Country: None (occurrence: None)
  Receive Date: 20120124
  Receipt Date: 20120124
  Transmission Date: 20120608
  Serious: Yes (Other)
  Sender: FDA-Public Use
  Company Number: None

PATIENT
  Sex: Male
  Weight: 68.0396 kg

DRUGS (1)
  1. AMLODIPINE BESYLATE [Suspect]
     Indication: HYPERTENSION
     Dosage: 10 MG 1 PER DAY BY MOUTH  ONE PILL TAKEN
     Route: 048
     Dates: start: 20111218

REACTIONS (3)
  - FEELING ABNORMAL [None]
  - EPISTAXIS [None]
  - ILL-DEFINED DISORDER [None]
